FAERS Safety Report 10658780 (Version 1)
Quarter: 2014Q4

REPORT INFORMATION
  Report Type: Report from Study
  Country: US (occurrence: US)
  Receive Date: 20141217
  Receipt Date: 20141217
  Transmission Date: 20150529
  Serious: Yes (Hospitalization, Other)
  Sender: FDA-Public Use
  Company Number: US-AMGEN INC.-USASL2014097775

PATIENT
  Age: 61 Year
  Sex: Female
  Weight: 94.33 kg

DRUGS (1)
  1. ENBREL [Suspect]
     Active Substance: ETANERCEPT
     Indication: RHEUMATOID ARTHRITIS
     Dosage: 50 MG, QWK
     Route: 058
     Dates: start: 201107, end: 201201

REACTIONS (6)
  - Knee arthroplasty [Unknown]
  - Pneumonia [Unknown]
  - Nasopharyngitis [Recovered/Resolved]
  - Treatment failure [Unknown]
  - Alopecia [Unknown]
  - Carpal tunnel syndrome [Unknown]

NARRATIVE: CASE EVENT DATE: 201406
